FAERS Safety Report 9060635 (Version 1)
Quarter: 2013Q1

REPORT INFORMATION
  Report Type: Spontaneous
  Country: FR (occurrence: FR)
  Receive Date: 20130212
  Receipt Date: 20130212
  Transmission Date: 20140127
  Serious: Yes (Hospitalization)
  Sender: FDA-Public Use
  Company Number: FR-B.I. PHARMACEUTICALS,INC./RIDGEFIELD-2013-FF-00228FF

PATIENT
  Age: 84 None
  Sex: Female

DRUGS (6)
  1. PRADAXA [Suspect]
     Indication: ATRIAL FIBRILLATION
     Dosage: 220 MG
     Route: 048
  2. CORDARONE [Concomitant]
     Dosage: 1 ANZ
  3. LASILIX [Concomitant]
     Dosage: 80 MG
  4. TRIATEC [Concomitant]
     Dosage: 2 ANZ
  5. DIFFU K [Concomitant]
     Dosage: 2 ANZ
  6. CARDENSIEL [Concomitant]

REACTIONS (5)
  - Asthenia [Unknown]
  - Malaise [Unknown]
  - Haemoglobin decreased [Unknown]
  - Gastrointestinal haemorrhage [Recovered/Resolved]
  - Melaena [Unknown]
